FAERS Safety Report 5547662-3 (Version None)
Quarter: 2007Q4

REPORT INFORMATION
  Report Type: 
  Country: None (occurrence: None)
  Receive Date: 20071211
  Receipt Date: 20071206
  Transmission Date: 20080405
  Serious: Yes (Death)
  Sender: FDA-Public Use
  Company Number: NL-BOEHRINGER INGELHEIM PHARMACEUTICALS, INC.-2007-NL-00528NL

PATIENT
  Sex: Female

DRUGS (1)
  1. SIFROL [Suspect]

REACTIONS (2)
  - DEATH [None]
  - PSYCHOTIC DISORDER [None]
